FAERS Safety Report 5269000-6 (Version None)
Quarter: 2007Q1

REPORT INFORMATION
  Report Type: 
  Country: None (occurrence: None)
  Receive Date: 20070319
  Receipt Date: 20070316
  Transmission Date: 20070707
  Serious: Yes (Disabling)
  Sender: FDA-Public Use
  Company Number: US-BRISTOL-MYERS SQUIBB COMPANY-13525886

PATIENT
  Age: 47 Year
  Sex: Male
  Weight: 75 kg

DRUGS (8)
  1. ORENCIA [Suspect]
     Indication: RHEUMATOID ARTHRITIS
     Route: 042
     Dates: start: 20060801, end: 20060830
  2. MOBIC [Concomitant]
  3. ARAVA [Concomitant]
  4. FOLIC ACID [Concomitant]
  5. ASPIRIN [Concomitant]
  6. PRAVACHOL [Concomitant]
  7. BENICAR [Concomitant]
  8. LORCET-HD [Concomitant]

REACTIONS (1)
  - CROHN'S DISEASE [None]
